FAERS Safety Report 5754746-3 (Version None)
Quarter: 2008Q2

REPORT INFORMATION
  Report Type: 
  Country: None (occurrence: None)
  Receive Date: 20080527
  Receipt Date: 20080512
  Transmission Date: 20081010
  Serious: Yes (Other)
  Sender: FDA-Public Use
  Company Number: 027688

PATIENT
  Age: 22 Year
  Sex: Female
  Weight: 56.7 kg

DRUGS (3)
  1. PLAN B [Suspect]
     Indication: CONTRACEPTION
     Dosage: 1 TABLET, Q12HR, ORAL
     Route: 048
     Dates: start: 20080512, end: 20080513
  2. ORTHO TRI-CYCLEN LO [Concomitant]
  3. ANTIBIOTICS [Concomitant]

REACTIONS (4)
  - ABDOMINAL PAIN [None]
  - LOSS OF CONSCIOUSNESS [None]
  - MEMORY IMPAIRMENT [None]
  - MENSTRUATION IRREGULAR [None]
